FAERS Safety Report 8283872 (Version 3)
Quarter: 2012Q4

REPORT INFORMATION
  Report Type: Spontaneous
  Country: GB (occurrence: None)
  Receive Date: 20111205
  Receipt Date: 20120906
  Transmission Date: 20130627
  Serious: Yes (Other)
  Sender: FDA-Public Use
  Company Number: GER/UKI/11/0022088

PATIENT
  Age: 38 Year
  Sex: Female
  Weight: 42 kg

DRUGS (11)
  1. FLUOXETINE [Suspect]
     Indication: DRUG USE FOR UNKNOWN INDICATION
     Dates: start: 20101018, end: 20110831
  2. TOPAMAX [Suspect]
     Indication: EPILEPSY
     Route: 048
     Dates: start: 20110830, end: 20110830
  3. TOPAMAX [Suspect]
     Indication: EPILEPSY
     Dosage: SEE IAMGE
     Dates: start: 20101025
  4. TOPAMAX [Suspect]
     Indication: EPILEPSY
     Dosage: SEE IAMGE
     Dates: start: 20100915, end: 20100915
  5. TOPAMAX [Suspect]
     Indication: EPILEPSY
     Dosage: SEE IAMGE
     Dates: start: 20091130, end: 20100623
  6. TOPAMAX [Suspect]
     Indication: EPILEPSY
     Dosage: SEE IAMGE
     Dates: start: 20070703
  7. ANTIDEPRESSANTS NOS (ANTIDEPRESSANTS) [Concomitant]
  8. FOLIC ACID [Concomitant]
  9. KEPPRA [Concomitant]
  10. RIVOTRIL [Concomitant]
  11. CLONAZEPAM (CLONAZEPAM) (CLONAZEPAM) [Concomitant]

REACTIONS (21)
  - Mood swings [None]
  - Palpitations [None]
  - Somnolence [None]
  - Depression [None]
  - Diarrhoea [None]
  - Irritable bowel syndrome [None]
  - Abdominal pain upper [None]
  - Paraesthesia [None]
  - Tooth loss [None]
  - Weight decreased [None]
  - Feeling abnormal [None]
  - Gingival bleeding [None]
  - Post procedural complication [None]
  - Hallucination [None]
  - Decreased appetite [None]
  - Breath odour [None]
  - Dysgeusia [None]
  - Emotional poverty [None]
  - Sensitivity of teeth [None]
  - Feeling abnormal [None]
  - Nerve degeneration [None]
